FAERS Safety Report 24170731 (Version 2)
Quarter: 2024Q3

REPORT INFORMATION
  Report Type: Spontaneous
  Country: DE (occurrence: DE)
  Receive Date: 20240805
  Receipt Date: 20240820
  Transmission Date: 20241017
  Serious: Yes (Other)
  Sender: AKCEA THERAPEUTICS
  Company Number: DE-AKCEA THERAPEUTICS, INC.-2024IS006118

PATIENT

DRUGS (7)
  1. TEGSEDI [Suspect]
     Active Substance: INOTERSEN SODIUM
     Indication: Hereditary neuropathic amyloidosis
     Dosage: 284 MILLIGRAM, QW
     Route: 058
     Dates: start: 20240808
  2. TEGSEDI [Suspect]
     Active Substance: INOTERSEN SODIUM
     Dosage: 284 MILLIGRAM, QW
     Route: 058
     Dates: start: 20240613, end: 20240801
  3. CLOPIDOGREL BESILATE [Concomitant]
     Active Substance: CLOPIDOGREL BESILATE
     Indication: Coronary artery disease
     Dosage: 75 MILLIGRAM, QOW
     Route: 048
     Dates: start: 20240328
  4. ASPIRIN [Concomitant]
     Active Substance: ASPIRIN
     Indication: Product used for unknown indication
     Dosage: 100 MILLIGRAM, QOW
     Route: 048
     Dates: start: 202003
  5. ROSUVASTATIN [Concomitant]
     Active Substance: ROSUVASTATIN\ROSUVASTATIN CALCIUM
     Indication: Coronary artery disease
     Dosage: 100 MILLIGRAM, QD, EVENING
     Route: 048
     Dates: start: 20240328
  6. ROSUVASTATIN [Concomitant]
     Active Substance: ROSUVASTATIN\ROSUVASTATIN CALCIUM
     Indication: Low density lipoprotein increased
  7. TAURIN [Concomitant]
     Indication: Product used for unknown indication
     Dosage: 2 G/D
     Route: 065

REACTIONS (7)
  - Spinal stenosis [Unknown]
  - Headache [Recovering/Resolving]
  - Chills [Unknown]
  - Fatigue [Unknown]
  - Anaemia [Unknown]
  - Influenza like illness [Recovering/Resolving]
  - Oedema peripheral [Recovering/Resolving]

NARRATIVE: CASE EVENT DATE: 20240701
